FAERS Safety Report 13845389 (Version 1)
Quarter: 2017Q3

REPORT INFORMATION
  Report Type: Spontaneous
  Country: US (occurrence: US)
  Receive Date: 20170808
  Receipt Date: 20170808
  Transmission Date: 20171127
  Serious: No
  Sender: FDA-Public Use
  Company Number: US-ROCHE-791377

PATIENT
  Sex: Female

DRUGS (2)
  1. PREVACID [Concomitant]
     Active Substance: LANSOPRAZOLE
     Route: 065
  2. BONIVA [Suspect]
     Active Substance: IBANDRONATE SODIUM
     Indication: PRODUCT USED FOR UNKNOWN INDICATION
     Dosage: DOSE FORM, ROUTE AND FREQUENCY NOT REPORTED?DRUG MENTIONED TO BE STARTED ON 20TH OF LAST MONTH
     Route: 065

REACTIONS (2)
  - Dyspepsia [Unknown]
  - Influenza like illness [Unknown]
